FAERS Safety Report 9280449 (Version 1)
Quarter: 2013Q2

REPORT INFORMATION
  Report Type: Spontaneous
  Country: US (occurrence: None)
  Receive Date: 20130507
  Receipt Date: 20130507
  Transmission Date: 20140414
  Serious: Yes (Other)
  Sender: FDA-Public Use
  Company Number: None

PATIENT
  Age: 25 Year
  Sex: Female
  Weight: 113.4 kg

DRUGS (1)
  1. APRI [Suspect]
     Indication: POLYCYSTIC OVARIES
     Dosage: 1 PILL
     Route: 048
     Dates: start: 20100401, end: 20110202

REACTIONS (3)
  - Dyspnoea [None]
  - Pulmonary embolism [None]
  - Deep vein thrombosis [None]
